FAERS Safety Report 13564997 (Version 2)
Quarter: 2017Q2

REPORT INFORMATION
  Report Type: Spontaneous
  Country: US (occurrence: US)
  Receive Date: 20170519
  Receipt Date: 20170613
  Transmission Date: 20170830
  Serious: Yes (Other)
  Sender: FDA-Public Use
  Company Number: US-009507513-1705USA005722

PATIENT
  Sex: Female

DRUGS (1)
  1. NUVARING [Suspect]
     Active Substance: ETHINYL ESTRADIOL\ETONOGESTREL
     Indication: CONTRACEPTION
     Dosage: RING, UNK
     Route: 067

REACTIONS (3)
  - Unintended pregnancy [Recovered/Resolved]
  - Pregnancy with contraceptive device [Recovered/Resolved]
  - Abortion induced [Unknown]

NARRATIVE: CASE EVENT DATE: 2016
